FAERS Safety Report 8623822 (Version 2)
Quarter: 2018Q4

REPORT INFORMATION
  Report Type: Spontaneous
  Country: FR (occurrence: FR)
  Receive Date: 20120620
  Receipt Date: 20180927
  Transmission Date: 20190205
  Serious: Yes (Hospitalization, Other)
  Sender: FDA-Public Use
  Company Number: FR-JNJFOC-20120608315

PATIENT
  Age: 32 Year
  Sex: Male

DRUGS (3)
  1. TETRAZEPAM [Suspect]
     Active Substance: TETRAZEPAM
     Indication: BACK PAIN
     Route: 048
     Dates: start: 20120509, end: 20120510
  2. SOLUPRED (PREDNISOLONE SODIUM METAZOATE) [Suspect]
     Active Substance: PREDNISOLONE SODIUM METAZOATE
     Indication: BACK PAIN
     Route: 048
     Dates: start: 20120509, end: 20120510
  3. IXPRIM [Suspect]
     Active Substance: ACETAMINOPHEN\TRAMADOL HYDROCHLORIDE
     Indication: BACK PAIN
     Route: 048
     Dates: start: 20120509, end: 20120510

REACTIONS (2)
  - Overdose [Not Recovered/Not Resolved]
  - Delirium [Not Recovered/Not Resolved]

NARRATIVE: CASE EVENT DATE: 20120511
